FAERS Safety Report 23457062 (Version 1)
Quarter: 2024Q1

REPORT INFORMATION
  Report Type: Spontaneous
  Country: None (occurrence: PL)
  Receive Date: 20240130
  Receipt Date: 20240130
  Transmission Date: 20240409
  Serious: Yes (Other)
  Sender: FDA-Public Use
  Company Number: PL-B.Braun Medical Inc.-2152267

PATIENT
  Age: 28 Year
  Sex: Female

DRUGS (11)
  1. ACETAMINOPHEN [Suspect]
     Active Substance: ACETAMINOPHEN
     Indication: Premedication
  2. CLEMASTINE [Suspect]
     Active Substance: CLEMASTINE
  3. OFATUMUMAB [Suspect]
     Active Substance: OFATUMUMAB
  4. Bupropion [BUPROPION] [Concomitant]
  5. Escitalopram [ESCITALOPRAM] [Concomitant]
  6. Euthyrox ?[LEVOTHYROXINE SODIUM] [Concomitant]
  7. Glatiramer acetate [GLATIRAMER ACETATE], [Concomitant]
  8. MEDROL [Concomitant]
     Active Substance: METHYLPREDNISOLONE
  9. Metformin [METFORMIN] [Concomitant]
  10. METHYLPREDNISOLONE [Concomitant]
     Active Substance: METHYLPREDNISOLONE
  11. Solifenacin [SOLIFENACIN] [Concomitant]

REACTIONS (6)
  - Fall [None]
  - Nausea [None]
  - Syncope [None]
  - Feeling abnormal [None]
  - Head injury [None]
  - Off label use [None]
